FAERS Safety Report 13518246 (Version 2)
Quarter: 2017Q2

REPORT INFORMATION
  Report Type: Spontaneous
  Country: US (occurrence: US)
  Receive Date: 20170505
  Receipt Date: 20170522
  Transmission Date: 20170830
  Serious: No
  Sender: FDA-Public Use
  Company Number: US-GLAXOSMITHKLINE-US2017065490

PATIENT
  Age: 42 Year
  Sex: Male

DRUGS (1)
  1. VENTOLIN HFA [Suspect]
     Active Substance: ALBUTEROL SULFATE
     Indication: ASTHMA
     Dosage: UNK UNK, PRN
     Dates: start: 201611

REACTIONS (6)
  - Device use error [Unknown]
  - Wrong technique in product usage process [Unknown]
  - Dyspnoea [Unknown]
  - Product quality issue [Unknown]
  - Drug ineffective [Unknown]
  - Wheezing [Unknown]

NARRATIVE: CASE EVENT DATE: 201704
